FAERS Safety Report 5386801-4 (Version None)
Quarter: 2007Q3

REPORT INFORMATION
  Report Type: 
  Country: None (occurrence: None)
  Receive Date: 20070713
  Receipt Date: 20070702
  Transmission Date: 20080115
  Serious: Yes (Hospitalization, Disabling, Other)
  Sender: FDA-Public Use
  Company Number: US-PFIZER INC-2006141110

PATIENT
  Sex: Female
  Weight: 84.4 kg

DRUGS (3)
  1. BEXTRA [Suspect]
     Indication: BURSITIS
     Route: 048
  2. BEXTRA [Suspect]
     Indication: ARTHRITIS
  3. BEXTRA [Suspect]
     Indication: HAND FRACTURE

REACTIONS (2)
  - ACUTE MYOCARDIAL INFARCTION [None]
  - CEREBROVASCULAR ACCIDENT [None]
